FAERS Safety Report 25611517 (Version 1)
Quarter: 2025Q3

REPORT INFORMATION
  Report Type: Spontaneous
  Country: US (occurrence: US)
  Receive Date: 20250728
  Receipt Date: 20250728
  Transmission Date: 20251021
  Serious: Yes (Other)
  Sender: ALEMBIC
  Company Number: US-ALEMBIC PHARMACUETICALS LIMITED-2025SCAL000887

PATIENT

DRUGS (1)
  1. METRONIDAZOLE [Suspect]
     Active Substance: METRONIDAZOLE
     Indication: Dysuria
     Route: 065

REACTIONS (8)
  - Fungal peritonitis [Unknown]
  - Mesenteric vein thrombosis [Unknown]
  - Intestinal ischaemia [Unknown]
  - Ascites [Unknown]
  - Blood albumin decreased [Unknown]
  - Pleocytosis [Unknown]
  - Abdominal pain [Unknown]
  - Dysbiosis [Unknown]
